FAERS Safety Report 4824540-6 (Version None)
Quarter: 2005Q4

REPORT INFORMATION
  Report Type: 
  Country: None (occurrence: None)
  Receive Date: 20051108
  Receipt Date: 20051108
  Transmission Date: 20060501
  Serious: Yes (Disabling)
  Sender: FDA-Public Use
  Company Number: None

PATIENT
  Age: 84 Year
  Sex: Female
  Weight: 53.6 kg

DRUGS (3)
  1. TENECTEPLASE (TNKASE) 50MG IV GENENTECH [Suspect]
     Indication: ACUTE MYOCARDIAL INFARCTION
     Dosage: 30 MG ONCE /STAT IV
     Route: 042
     Dates: start: 20050429
  2. ASPIRIN [Concomitant]
  3. HEPARIN [Concomitant]

REACTIONS (1)
  - BLINDNESS UNILATERAL [None]
